FAERS Safety Report 4608833-3 (Version None)
Quarter: 2005Q1

REPORT INFORMATION
  Report Type: 
  Country: None (occurrence: None)
  Receive Date: 20050315
  Receipt Date: 20041102
  Transmission Date: 20050727
  Serious: Yes (Other)
  Sender: FDA-Public Use
  Company Number: FR-GLAXOSMITHKLINE-B0350470A

PATIENT
  Age: 63 Year
  Sex: Male
  Weight: 55 kg

DRUGS (4)
  1. AGENERASE [Suspect]
     Indication: HIV INFECTION
     Route: 048
     Dates: start: 20030724, end: 20030810
  2. LAMIVUDINE [Concomitant]
     Indication: HIV INFECTION
     Route: 048
     Dates: start: 20021210
  3. KALETRA [Concomitant]
     Indication: HIV INFECTION
     Route: 048
     Dates: start: 20030522
  4. TELZIR [Concomitant]
     Indication: HIV INFECTION
     Route: 048
     Dates: start: 20041023, end: 20041023

REACTIONS (4)
  - CD4 LYMPHOCYTES DECREASED [None]
  - HEPATOCELLULAR DAMAGE [None]
  - LIPASE INCREASED [None]
  - VIRAL LOAD INCREASED [None]
